FAERS Safety Report 9889476 (Version 1)
Quarter: 2014Q1

REPORT INFORMATION
  Report Type: Report from Study
  Country: US (occurrence: US)
  Receive Date: 20140211
  Receipt Date: 20140211
  Transmission Date: 20141002
  Serious: Yes (Hospitalization, Other)
  Sender: FDA-Public Use
  Company Number: US-ABBVIE-14P-163-1197771-00

PATIENT
  Sex: Female
  Weight: 96.25 kg

DRUGS (14)
  1. HUMIRA [Suspect]
     Indication: RHEUMATOID ARTHRITIS
     Dates: start: 2006, end: 2007
  2. HUMIRA [Suspect]
     Dates: start: 2007, end: 2010
  3. HUMIRA [Suspect]
     Dates: start: 2012, end: 20140131
  4. METHOTREXATE [Concomitant]
     Indication: RHEUMATOID ARTHRITIS
  5. ARAVA [Concomitant]
     Indication: RHEUMATOID ARTHRITIS
  6. PREDNISONE [Concomitant]
     Indication: RHEUMATOID ARTHRITIS
  7. METFORMIN [Concomitant]
     Indication: TYPE 2 DIABETES MELLITUS
  8. LOVASTATIN [Concomitant]
     Indication: BLOOD CHOLESTEROL INCREASED
  9. LISINOPRIL [Concomitant]
     Indication: HYPERTENSION
  10. NORVASC [Concomitant]
     Indication: HYPERTENSION
  11. FUROSEMIDE [Concomitant]
     Indication: DIURETIC THERAPY
  12. EFFEXOR [Concomitant]
     Indication: PRODUCT USED FOR UNKNOWN INDICATION
  13. NEURONTIN [Concomitant]
     Indication: INTERVERTEBRAL DISC DEGENERATION
  14. MOBIC [Concomitant]
     Indication: ANTIINFLAMMATORY THERAPY

REACTIONS (12)
  - Gait disturbance [Recovered/Resolved]
  - Arthralgia [Recovered/Resolved]
  - Joint stiffness [Recovered/Resolved]
  - Joint instability [Recovered/Resolved]
  - Postoperative wound infection [Recovered/Resolved]
  - Joint swelling [Recovered/Resolved]
  - Purulent discharge [Recovered/Resolved]
  - Arthralgia [Not Recovered/Not Resolved]
  - Arthritis [Not Recovered/Not Resolved]
  - Rheumatoid nodule [Not Recovered/Not Resolved]
  - Hand deformity [Not Recovered/Not Resolved]
  - Joint swelling [Not Recovered/Not Resolved]
